FAERS Safety Report 12459141 (Version 1)
Quarter: 2016Q2

REPORT INFORMATION
  Report Type: Spontaneous
  Country: US (occurrence: None)
  Receive Date: 20160610
  Receipt Date: 20160610
  Transmission Date: 20160815
  Serious: Yes (Life-Threatening, Hospitalization, Other)
  Sender: FDA-Public Use
  Company Number: None

PATIENT
  Age: 45 Year

DRUGS (1)
  1. OFLOXACIN. [Suspect]
     Active Substance: OFLOXACIN

REACTIONS (10)
  - Pruritus [None]
  - Swelling face [None]
  - Speech disorder [None]
  - Skin warm [None]
  - Dry mouth [None]
  - Anaphylactic reaction [None]
  - Documented hypersensitivity to administered product [None]
  - Apparent death [None]
  - Skin irritation [None]
  - Eye disorder [None]

NARRATIVE: CASE EVENT DATE: 20150717
